FAERS Safety Report 6555436-X (Version None)
Quarter: 2010Q1

REPORT INFORMATION
  Report Type: 
  Country: None (occurrence: None)
  Receive Date: 20100128
  Receipt Date: 20091125
  Transmission Date: 20100710
  Serious: No
  Sender: FDA-Public Use
  Company Number: A0832018A

PATIENT
  Age: 32 Year
  Sex: Female

DRUGS (2)
  1. WELLBUTRIN [Suspect]
     Indication: ATTENTION DEFICIT/HYPERACTIVITY DISORDER
     Dosage: 100MG TWICE PER DAY
     Route: 048
     Dates: start: 20090101
  2. NO CONCURRENT MEDICATION [Concomitant]

REACTIONS (1)
  - ALOPECIA [None]
